FAERS Safety Report 25379220 (Version 1)
Quarter: 2025Q2

REPORT INFORMATION
  Report Type: Spontaneous
  Country: US (occurrence: None)
  Receive Date: 20250529
  Receipt Date: 20250529
  Transmission Date: 20250716
  Serious: No
  Sender: FDA-CTU
  Company Number: None

PATIENT
  Age: 5 Year
  Sex: Female
  Weight: 25.6 kg

DRUGS (17)
  1. INFLECTRA [Suspect]
     Active Substance: INFLIXIMAB-DYYB
     Dates: start: 20240907, end: 20250417
  2. AMOXICILLIN [Concomitant]
     Active Substance: AMOXICILLIN
  3. BUDESONIDE [Concomitant]
     Active Substance: BUDESONIDE
  4. CALCIUM CARBONATE [Concomitant]
     Active Substance: CALCIUM CARBONATE
  5. CETIRIZINE [Concomitant]
     Active Substance: CETIRIZINE HYDROCHLORIDE
  6. VITAMIN D3 [Concomitant]
     Active Substance: CHOLECALCIFEROL
  7. CLOBAZAM [Concomitant]
     Active Substance: CLOBAZAM
  8. ECONAZOLE NITRATE [Concomitant]
     Active Substance: ECONAZOLE NITRATE
  9. ENALAPRIL [Concomitant]
     Active Substance: ENALAPRIL
  10. ENOXAPARIN [Concomitant]
     Active Substance: ENOXAPARIN
  11. ERYTHROMYCIN [Concomitant]
     Active Substance: ERYTHROMYCIN
  12. FAMOTIDINE [Concomitant]
     Active Substance: FAMOTIDINE
  13. IPRATROPIUM [Concomitant]
     Active Substance: IPRATROPIUM
  14. LEVETIRACETAM [Concomitant]
     Active Substance: LEVETIRACETAM
  15. MELATONIN [Concomitant]
     Active Substance: MELATONIN
  16. PREDNISONE [Concomitant]
     Active Substance: PREDNISONE
  17. TRAZODONE [Concomitant]
     Active Substance: TRAZODONE HYDROCHLORIDE

REACTIONS (3)
  - Infusion related reaction [None]
  - Dizziness [None]
  - Dyspnoea [None]

NARRATIVE: CASE EVENT DATE: 20250416
